FAERS Safety Report 8186504-7 (Version None)
Quarter: 2012Q1

REPORT INFORMATION
  Report Type: 
  Country: None (occurrence: None)
  Receive Date: 20120302
  Receipt Date: 20120302
  Transmission Date: 20120608
  Serious: No
  Sender: FDA-Public Use
  Company Number: None

PATIENT
  Age: 60 Year
  Sex: Male
  Weight: 65.7716 kg

DRUGS (1)
  1. METAMUCIL-2 [Suspect]
     Indication: MEDICAL DIET
     Dosage: 1 TSP DAILY ORAL
     Route: 048
     Dates: start: 20120201, end: 20120220

REACTIONS (3)
  - PRURITUS [None]
  - URTICARIA [None]
  - ERYTHEMA [None]
